FAERS Safety Report 12758875 (Version 1)
Quarter: 2016Q3

REPORT INFORMATION
  Report Type: Spontaneous
  Country: US (occurrence: US)
  Receive Date: 20160918
  Receipt Date: 20160918
  Transmission Date: 20161109
  Serious: Yes (Disabling)
  Sender: FDA-Public Use
  Company Number: None

PATIENT
  Age: 70 Year
  Sex: Female
  Weight: 81 kg

DRUGS (22)
  1. LEVAQUIN [Suspect]
     Active Substance: LEVOFLOXACIN
     Indication: POSTOPERATIVE CARE
     Route: 048
     Dates: start: 20050922, end: 20050927
  2. PROBIOTICS [Concomitant]
     Active Substance: PROBIOTICS NOS
  3. NP THYROID [Concomitant]
     Active Substance: LEVOTHYROXINE\LIOTHYRONINE
  4. CALCIUM CITRATE [Concomitant]
     Active Substance: CALCIUM CITRATE
  5. R LIPOIC ACID [Concomitant]
  6. VITAMIN B COMPLEX [Concomitant]
     Active Substance: CYANOCOBALAMIN\DEXPANTHENOL\NIACINAMIDE\PYRIDOXINE HYDROCHLORIDE\RIBOFLAVIN 5^-PHOSPHATE SODIUM\THIAMINE HYDROCHLORIDE\VITAMIN B COMPLEX
  7. LEVAQUIN [Suspect]
     Active Substance: LEVOFLOXACIN
     Indication: INFECTION PROPHYLAXIS
     Route: 048
     Dates: start: 20050922, end: 20050927
  8. MAXZIDE (DIURETIC) [Concomitant]
  9. NASONEX [Concomitant]
     Active Substance: MOMETASONE FUROATE
  10. VITAMIN C [Concomitant]
     Active Substance: ASCORBIC ACID
  11. PAMELOR [Concomitant]
     Active Substance: NORTRIPTYLINE HYDROCHLORIDE
  12. BROAD SPECTRUM MAGNESIUM [Concomitant]
  13. OMEGA-3 JOINT RELIEF [Concomitant]
  14. TRAMADOL. [Concomitant]
     Active Substance: TRAMADOL
  15. NEURONTIN [Concomitant]
     Active Substance: GABAPENTIN
  16. OMEGA Q PLUS (CALAMARINE OIL, L-CARNITINE, COENZYME Q10, VITAMIN B6, FOLIC ACID, VITAMIN B12) [Concomitant]
  17. CIPROFLOXACIN. [Suspect]
     Active Substance: CIPROFLOXACIN
     Indication: BRONCHITIS
     Route: 048
     Dates: start: 20060915, end: 20060921
  18. BENAZEPRIL [Concomitant]
     Active Substance: BENAZEPRIL HYDROCHLORIDE
  19. VITAMIN D3 [Concomitant]
     Active Substance: CHOLECALCIFEROL
  20. GLUCOMANNAN (FIBER) [Concomitant]
  21. OMEGA-3 CALAMARINE [Concomitant]
  22. HEART HEALTHY MULTIVITAMIN FOR WOMEN [Concomitant]

REACTIONS (3)
  - Peripheral sensory neuropathy [None]
  - Gluten sensitivity [None]
  - Coronary artery disease [None]

NARRATIVE: CASE EVENT DATE: 20070130
